FAERS Safety Report 19290120 (Version 7)
Quarter: 2021Q4

REPORT INFORMATION
  Report Type: Report from Study
  Country: US (occurrence: US)
  Receive Date: 20210522
  Receipt Date: 20211227
  Transmission Date: 20220303
  Serious: Yes (Hospitalization, Other)
  Sender: FDA-Public Use
  Company Number: NVSC2021US107531

PATIENT
  Age: 67 Year
  Sex: Female

DRUGS (2)
  1. ENTRESTO [Suspect]
     Active Substance: SACUBITRIL\VALSARTAN
     Indication: Product used for unknown indication
     Dosage: 1 DOSAGE FORM, BID  (97/103 MG),
     Route: 048
  2. LABETALOL [Concomitant]
     Active Substance: LABETALOL\LABETALOL HYDROCHLORIDE
     Indication: Product used for unknown indication
     Dosage: UNK
     Route: 065

REACTIONS (13)
  - COVID-19 [Unknown]
  - Chest discomfort [Unknown]
  - Dyspnoea [Unknown]
  - Diverticulitis [Unknown]
  - Weight decreased [Unknown]
  - Joint swelling [Unknown]
  - Swelling face [Unknown]
  - Vitamin D decreased [Recovering/Resolving]
  - Fatigue [Recovering/Resolving]
  - Viral infection [Unknown]
  - Feeling abnormal [Unknown]
  - Palpitations [Recovered/Resolved]
  - Fluid retention [Unknown]

NARRATIVE: CASE EVENT DATE: 20211020
